FAERS Safety Report 5164219-7 (Version None)
Quarter: 2006Q4

REPORT INFORMATION
  Report Type: 
  Country: None (occurrence: None)
  Receive Date: 20060918
  Receipt Date: 20051205
  Transmission Date: 20070319
  Serious: Yes (Other)
  Sender: FDA-Public Use
  Company Number: PHEH2005US08954

PATIENT
  Age: 49 Year
  Sex: Female

DRUGS (1)
  1. FEMARA [Suspect]
     Indication: BREAST CANCER
     Dosage: 2.5 MG, QD, ORAL
     Route: 048
     Dates: start: 20050111, end: 20050803

REACTIONS (4)
  - BREAST DISORDER [None]
  - CARBOHYDRATE ANTIGEN 15-3 [None]
  - CHEST WALL MASS [None]
  - MALIGNANT NEOPLASM PROGRESSION [None]
